FAERS Safety Report 15315850 (Version 1)
Quarter: 2018Q3

REPORT INFORMATION
  Report Type: Spontaneous
  Country: RO (occurrence: RO)
  Receive Date: 20180824
  Receipt Date: 20180824
  Transmission Date: 20181010
  Serious: Yes (Other)
  Sender: FDA-Public Use
  Company Number: PHHY2018RO076092

PATIENT
  Age: 67 Year
  Sex: Female

DRUGS (2)
  1. PACLITAXEL. [Suspect]
     Active Substance: PACLITAXEL
     Indication: OVARIAN CANCER
     Dosage: UNK
     Route: 065
  2. CISPLATIN. [Suspect]
     Active Substance: CISPLATIN
     Indication: OVARIAN CANCER
     Dosage: UNK
     Route: 065

REACTIONS (11)
  - Pericardial effusion [Recovered/Resolved]
  - Alkalosis hypochloraemic [Unknown]
  - Hypoxia [Unknown]
  - Dyspnoea [Unknown]
  - Pulmonary hypertension [Recovering/Resolving]
  - Peripheral swelling [Unknown]
  - Hypoproteinaemia [Unknown]
  - Pleural effusion [Recovering/Resolving]
  - Eye swelling [Unknown]
  - Hypoalbuminaemia [Unknown]
  - Metabolic alkalosis [Unknown]
